FAERS Safety Report 8473766-1 (Version None)
Quarter: 2012Q2

REPORT INFORMATION
  Report Type: 
  Country: None (occurrence: None)
  Receive Date: 20120628
  Receipt Date: 20120127
  Transmission Date: 20120825
  Serious: Yes (Other)
  Sender: FDA-Public Use
  Company Number: US-MYLANLABS-2011S1022361

PATIENT
  Age: 39 Year
  Sex: Female
  Weight: 133.81 kg

DRUGS (9)
  1. CLOZAPINE [Suspect]
     Indication: SCHIZOAFFECTIVE DISORDER
     Route: 048
     Dates: start: 20101220, end: 20111026
  2. PHENTERMINE [Suspect]
  3. ABILIFY [Suspect]
  4. CLOZAPINE [Suspect]
     Indication: DEPRESSION
     Route: 048
     Dates: start: 20101220, end: 20111026
  5. CLOZAPINE [Suspect]
     Route: 048
     Dates: end: 20110101
  6. CLOZAPINE [Suspect]
     Route: 048
     Dates: end: 20110101
  7. SEROQUEL [Suspect]
  8. CLONAZEPAM [Concomitant]
  9. CYMBALTA [Concomitant]

REACTIONS (2)
  - GRANULOCYTOPENIA [None]
  - LEUKOPENIA [None]
